APPROVED DRUG PRODUCT: ORTHO TRI-CYCLEN LO
Active Ingredient: ETHINYL ESTRADIOL; NORGESTIMATE
Strength: 0.025MG,0.025MG,0.025MG;0.18MG,0.215MG,0.25MG **Federal Register determination that product was not discontinued or withdrawn for safety or effectiveness reasons**
Dosage Form/Route: TABLET;ORAL-28
Application: N021241 | Product #001
Applicant: JANSSEN PHARMACEUTICALS INC
Approved: Aug 22, 2002 | RLD: Yes | RS: No | Type: DISCN